FAERS Safety Report 8935967 (Version 1)
Quarter: 2012Q4

REPORT INFORMATION
  Report Type: Report from Study
  Country: FR (occurrence: FR)
  Receive Date: 20121130
  Receipt Date: 20121130
  Transmission Date: 20130627
  Serious: Yes (Hospitalization)
  Sender: FDA-Public Use
  Company Number: FR-CELGENEUS-056-22393-12112814

PATIENT
  Age: 59 Year
  Sex: Female
  Weight: 50 kg

DRUGS (6)
  1. ISTODAX [Suspect]
     Indication: LYMPHOMA
     Dosage: 19.3 Milligram
     Route: 065
     Dates: start: 20120703, end: 20121112
  2. ISTODAX [Suspect]
     Dosage: 19.3 Milligram
     Route: 065
     Dates: end: 20121119
  3. CYCLOPHOSPHAMIDE [Suspect]
     Indication: LYMPHOMA
     Route: 065
     Dates: start: 20120703, end: 20121116
  4. DOXORUBICIN [Suspect]
     Indication: LYMPHOMA
     Route: 065
     Dates: start: 20120703, end: 20121116
  5. VINCRISTINE [Suspect]
     Indication: LYMPHOMA
     Route: 065
     Dates: start: 20120703, end: 20121116
  6. PREDNISONE [Suspect]
     Indication: LYMPHOMA
     Route: 065
     Dates: start: 20120703, end: 20121116

REACTIONS (1)
  - General physical health deterioration [Not Recovered/Not Resolved]
